FAERS Safety Report 9406170 (Version 1)
Quarter: 2013Q3

REPORT INFORMATION
  Report Type: Spontaneous
  Country: FR (occurrence: FR)
  Receive Date: 20130717
  Receipt Date: 20130717
  Transmission Date: 20140515
  Serious: Yes (Hospitalization, Other)
  Sender: FDA-Public Use
  Company Number: FR-PFIZER INC-2013205758

PATIENT
  Age: 58 Year
  Sex: Female

DRUGS (5)
  1. TAHOR [Suspect]
     Dosage: 80 MG, DAILY IN THE EVENING
     Route: 048
     Dates: start: 20111029, end: 201305
  2. ASPEGIC [Concomitant]
     Dosage: 1 DF, DAILY IN THE MORNING
     Dates: start: 20111029
  3. SECTRAL [Concomitant]
     Dosage: 0.5 DF, TWICE DAILY (IN THE MORNING AND IN THE EVENING)
     Dates: start: 20111029
  4. EFFIENT [Concomitant]
     Dosage: 1 DF, DAILY
     Dates: start: 20111029
  5. COVERSYL [Concomitant]
     Dosage: 2.5 MG, DAILY
     Dates: start: 20111029

REACTIONS (4)
  - Autoimmune hepatitis [Not Recovered/Not Resolved]
  - Chest pain [Unknown]
  - Cholestatic liver injury [Unknown]
  - Hepatic steatosis [Unknown]
